FAERS Safety Report 10744281 (Version 1)
Quarter: 2015Q1

REPORT INFORMATION
  Report Type: Spontaneous
  Country: US (occurrence: None)
  Receive Date: 20150126
  Receipt Date: 20150126
  Transmission Date: 20150721
  Serious: Yes (Disabling)
  Sender: FDA-Public Use
  Company Number: None

PATIENT
  Age: 76 Year
  Sex: Female
  Weight: 86.18 kg

DRUGS (4)
  1. CEPHALEXIN 500MG [Suspect]
     Active Substance: CEPHALEXIN
     Indication: ANTIBIOTIC PROPHYLAXIS
     Dosage: 1 PILL, THREE TIMES DAILY, TAKEN BY MOUTH
     Route: 048
     Dates: start: 20141119, end: 20141122
  2. EXEMESTANE. [Suspect]
     Active Substance: EXEMESTANE
     Indication: ABASIA
     Dosage: 1 PILL, ONCE DAILY, TAKEN BY MOUTH
     Route: 048
     Dates: start: 20140501, end: 20140609
  3. EXEMESTANE. [Suspect]
     Active Substance: EXEMESTANE
     Indication: PROCEDURAL NAUSEA
     Dosage: 1 PILL, ONCE DAILY, TAKEN BY MOUTH
     Route: 048
     Dates: start: 20140501, end: 20140609
  4. EXEMESTANE. [Suspect]
     Active Substance: EXEMESTANE
     Indication: COUGH
     Dosage: 1 PILL, ONCE DAILY, TAKEN BY MOUTH
     Route: 048
     Dates: start: 20140501, end: 20140609

REACTIONS (8)
  - Visual impairment [None]
  - Malaise [None]
  - Chromaturia [None]
  - Product substitution issue [None]
  - Headache [None]
  - Urine output decreased [None]
  - Eye pain [None]
  - Vulvovaginal pruritus [None]

NARRATIVE: CASE EVENT DATE: 20141119
